FAERS Safety Report 7113470-5 (Version None)
Quarter: 2010Q4

REPORT INFORMATION
  Report Type: 
  Country: None (occurrence: None)
  Receive Date: 20101119
  Receipt Date: 20101117
  Transmission Date: 20110411
  Serious: Yes (Death, Other)
  Sender: FDA-Public Use
  Company Number: US-ROXANE LABORATORIES, INC.-2010-RO-01512RO

PATIENT
  Age: 53 Year
  Sex: Male

DRUGS (2)
  1. MERCAPTOPURINE [Suspect]
     Indication: CROHN'S DISEASE
  2. AZATHIOPRINE [Suspect]
     Indication: CROHN'S DISEASE

REACTIONS (2)
  - CENTRAL NERVOUS SYSTEM LYMPHOMA [None]
  - DEATH [None]
